FAERS Safety Report 15809960 (Version 1)
Quarter: 2019Q1

REPORT INFORMATION
  Report Type: Spontaneous
  Country: US (occurrence: US)
  Receive Date: 20190111
  Receipt Date: 20190111
  Transmission Date: 20190417
  Serious: Yes (Other)
  Sender: FDA-Public Use
  Company Number: US-ROCHE-2111163

PATIENT
  Sex: Female

DRUGS (1)
  1. RITUXAN [Suspect]
     Active Substance: RITUXIMAB
     Indication: RHEUMATOID ARTHRITIS
     Dosage: 1 INFUSION OF THE FIRST CYCLE
     Route: 042
     Dates: start: 20171229

REACTIONS (4)
  - Pneumonia [Unknown]
  - Generalised erythema [Unknown]
  - Pruritus [Unknown]
  - Malaise [Unknown]
